FAERS Safety Report 23041435 (Version 1)
Quarter: 2023Q4

REPORT INFORMATION
  Report Type: Spontaneous
  Country: US (occurrence: US)
  Receive Date: 20231007
  Receipt Date: 20231007
  Transmission Date: 20240110
  Serious: Yes (Death, Hospitalization)
  Sender: FDA-Public Use
  Company Number: US-JNJFOC-20231005511

PATIENT
  Age: 72 Year
  Sex: Male
  Weight: 97.1 kg

DRUGS (20)
  1. OPSUMIT [Suspect]
     Active Substance: MACITENTAN
     Indication: Product used for unknown indication
     Route: 048
  2. REMODULIN [Suspect]
     Active Substance: TREPROSTINIL
     Indication: Pulmonary arterial hypertension
     Route: 042
     Dates: start: 20230523
  3. REMODULIN [Suspect]
     Active Substance: TREPROSTINIL
     Dosage: //2023
     Route: 042
  4. REMODULIN [Suspect]
     Active Substance: TREPROSTINIL
     Dosage: //2023
     Route: 042
  5. TADALAFIL [Concomitant]
     Active Substance: TADALAFIL
  6. FENOFIBRATE [Concomitant]
     Active Substance: FENOFIBRATE
  7. VITAMIN D3 [Concomitant]
     Active Substance: CHOLECALCIFEROL
  8. HYDRALAZINE [Concomitant]
     Active Substance: HYDRALAZINE HYDROCHLORIDE
  9. AZATHIOPRINE [Concomitant]
     Active Substance: AZATHIOPRINE
  10. FUROSEMIDE [Concomitant]
     Active Substance: FUROSEMIDE
  11. GABAPENTIN [Concomitant]
     Active Substance: GABAPENTIN
  12. ZYRTEC [Concomitant]
     Active Substance: CETIRIZINE HYDROCHLORIDE
  13. IPRATROPIUM [Concomitant]
     Active Substance: IPRATROPIUM
  14. OXYGEN [Concomitant]
     Active Substance: OXYGEN
  15. LEVOTHYROXINE SODIUM [Concomitant]
     Active Substance: LEVOTHYROXINE SODIUM
  16. ASPIRIN [Concomitant]
     Active Substance: ASPIRIN
  17. SIMVASTATIN [Concomitant]
     Active Substance: SIMVASTATIN
  18. FOLIC ACID [Concomitant]
     Active Substance: FOLIC ACID
  19. LATANOPROST [Concomitant]
     Active Substance: LATANOPROST
  20. PANTOPRAZOLE SODIUM [Concomitant]
     Active Substance: PANTOPRAZOLE SODIUM

REACTIONS (15)
  - Death [Fatal]
  - Acute respiratory failure [Unknown]
  - Catheterisation venous [Unknown]
  - Dyspnoea exertional [Unknown]
  - Seasonal allergy [Unknown]
  - Hypophagia [Not Recovered/Not Resolved]
  - Headache [Not Recovered/Not Resolved]
  - Nausea [Not Recovered/Not Resolved]
  - Tremor [Not Recovered/Not Resolved]
  - Retching [Not Recovered/Not Resolved]
  - Fatigue [Not Recovered/Not Resolved]
  - Oxygen saturation decreased [Unknown]
  - Muscular weakness [Unknown]
  - Somnolence [Unknown]
  - Mobility decreased [Unknown]

NARRATIVE: CASE EVENT DATE: 20230101
